FAERS Safety Report 6096622-5 (Version None)
Quarter: 2009Q1

REPORT INFORMATION
  Report Type: 
  Country: None (occurrence: None)
  Receive Date: 20090227
  Receipt Date: 20090219
  Transmission Date: 20090719
  Serious: Yes (Disabling)
  Sender: FDA-Public Use
  Company Number: JP-NOVOPROD-284382

PATIENT
  Age: 89 Year
  Sex: Female
  Weight: 38 kg

DRUGS (5)
  1. LEVEMIR [Suspect]
     Indication: INSULIN-REQUIRING TYPE 2 DIABETES MELLITUS
     Dosage: 15+0+10 IU
     Route: 058
     Dates: end: 20090211
  2. LIPOVAS                            /00499301/ [Concomitant]
     Dosage: 5 MG, QD
     Route: 048
     Dates: end: 20090211
  3. CRAVIT [Concomitant]
     Dosage: 300 MG, QD
     Route: 048
     Dates: start: 20090126, end: 20090130
  4. MUCODYNE [Concomitant]
     Dosage: 1500 MG, QD
     Route: 048
     Dates: start: 20090126, end: 20090130
  5. FLOMOX [Concomitant]
     Dosage: 300 MG, QD
     Route: 048
     Dates: start: 20090204, end: 20090210

REACTIONS (3)
  - HYPOGLYCAEMIC COMA [None]
  - HYPOGLYCAEMIC ENCEPHALOPATHY [None]
  - HYPOGLYCAEMIC UNCONSCIOUSNESS [None]
